FAERS Safety Report 16371177 (Version 4)
Quarter: 2022Q1

REPORT INFORMATION
  Report Type: Report from Study
  Country: IL (occurrence: None)
  Receive Date: 20190530
  Receipt Date: 20220218
  Transmission Date: 20220424
  Serious: Yes (Other)
  Sender: FDA-Public Use
  Company Number: IL-ROCHE-2327289

PATIENT
  Age: 65 Year
  Sex: Female
  Weight: 75 kg

DRUGS (22)
  1. PLACEBO [Suspect]
     Active Substance: UNSPECIFIED INGREDIENT
     Indication: Metastatic malignant melanoma
     Dosage: DATE OF MOST RECENT DOSE OF BLINDED ATEZOLIZUMAB PRIOR TO AE ONSET: 23/OCT/2018
     Route: 042
     Dates: start: 20180115
  2. VEMURAFENIB [Suspect]
     Active Substance: VEMURAFENIB
     Indication: Metastatic malignant melanoma
     Dosage: DATE OF MOST RECENT DOSE OF VEMURAFENIB PRIOR TO EVENT ONSET: 24/OCT/2018?(FOUR, 240 MG TABLETS) DOS
     Route: 048
     Dates: start: 20171218
  3. COBIMETINIB [Suspect]
     Active Substance: COBIMETINIB
     Indication: Metastatic malignant melanoma
     Dosage: DATE OF MOST RECENT DOSE OF COBIMETINIB PRIOR TO EVENT ONSET: 24/OCT/2018 (THREE, 20 MG TABLETS)?END
     Route: 048
     Dates: start: 20171218
  4. LOPERAMIDE [Concomitant]
     Active Substance: LOPERAMIDE
     Indication: Diarrhoea
     Route: 048
     Dates: start: 20171221
  5. .BETA.-CAROTENE [Concomitant]
     Active Substance: .BETA.-CAROTENE
     Indication: Sunburn
     Dates: start: 20180921, end: 20180925
  6. .BETA.-CAROTENE [Concomitant]
     Active Substance: .BETA.-CAROTENE
     Dates: start: 20190811, end: 20190826
  7. LORATADINE [Concomitant]
     Active Substance: LORATADINE
     Indication: Hypersensitivity
     Dates: start: 20190211, end: 20190305
  8. CLOBETASOL PROPIONATE [Concomitant]
     Active Substance: CLOBETASOL PROPIONATE
     Indication: Hypersensitivity
     Route: 061
     Dates: start: 20190213, end: 20190305
  9. METAMIZOLE [Concomitant]
     Active Substance: METAMIZOLE
     Indication: Influenza
     Dates: start: 20200223, end: 20200301
  10. DEXAMETHASONE [Concomitant]
     Active Substance: DEXAMETHASONE
     Indication: COVID-19
     Dates: start: 20200909, end: 20200919
  11. NEXIUM [Concomitant]
     Active Substance: ESOMEPRAZOLE MAGNESIUM
     Dates: start: 20200909, end: 20200919
  12. REMDESIVIR [Concomitant]
     Active Substance: REMDESIVIR
     Indication: COVID-19
     Dates: start: 20200910, end: 20200915
  13. ENOXAPARIN SODIUM [Concomitant]
     Active Substance: ENOXAPARIN SODIUM
     Dates: start: 20200909, end: 20200920
  14. CEFUROXIME [Concomitant]
     Active Substance: CEFUROXIME
     Indication: Urinary tract infection
     Dates: start: 20201115, end: 20201119
  15. FERROUS SULFATE [Concomitant]
     Active Substance: FERROUS SULFATE
     Indication: Anaemia
     Dates: start: 20210101
  16. ACYCLOVIR [Concomitant]
     Active Substance: ACYCLOVIR
     Indication: Herpes zoster
     Dates: start: 20210201, end: 20210205
  17. NITROFURANTOIN [Concomitant]
     Active Substance: NITROFURANTOIN
     Indication: Urinary tract infection
     Dates: start: 20211004, end: 20211008
  18. CLOBETASOL [Concomitant]
     Active Substance: CLOBETASOL
     Indication: Panniculitis
     Dosage: 1 UNIT
     Route: 061
     Dates: start: 20211021
  19. CHOLECALCIFEROL [Concomitant]
     Active Substance: CHOLECALCIFEROL
     Dates: start: 20200823
  20. COVID-19 VACCINE [Concomitant]
     Indication: Prophylaxis
     Dates: start: 20210302, end: 20210302
  21. COVID-19 VACCINE [Concomitant]
     Dates: start: 20220203, end: 20220203
  22. CEPHALEXIN [Concomitant]
     Active Substance: CEPHALEXIN
     Indication: Urinary tract infection
     Dates: start: 20220206, end: 20220210

REACTIONS (1)
  - Cholangitis [Not Recovered/Not Resolved]

NARRATIVE: CASE EVENT DATE: 20181024
